FAERS Safety Report 20691567 (Version 1)
Quarter: 2022Q2

REPORT INFORMATION
  Report Type: Spontaneous
  Country: CH (occurrence: CH)
  Receive Date: 20220408
  Receipt Date: 20220408
  Transmission Date: 20220721
  Serious: Yes (Hospitalization, Other)
  Sender: FDA-Public Use
  Company Number: None

PATIENT
  Age: 79 Year
  Sex: Female

DRUGS (13)
  1. DIFLUCAN [Suspect]
     Active Substance: FLUCONAZOLE
     Dosage: 50 MG, DAILY, 0-1-0-0
     Route: 048
     Dates: end: 20210919
  2. VALCYTE [Suspect]
     Active Substance: VALGANCICLOVIR HYDROCHLORIDE
     Dosage: 450 MG, DAILY, 1-0-0-0
     Route: 048
     Dates: start: 202108, end: 20210910
  3. CELLCEPT [Suspect]
     Active Substance: MYCOPHENOLATE MOFETIL
     Dosage: 5 MG, 2X/DAY, 1-0-1
     Route: 048
     Dates: end: 20210909
  4. NOVALGIN (METAMIZOLE SODIUM) [Suspect]
     Active Substance: METAMIZOLE SODIUM
     Dosage: UNK
     Dates: end: 20210910
  5. FOLIC ACID [Concomitant]
     Active Substance: FOLIC ACID
     Dosage: 5 MG, DAILY, 1-0-0-0
     Route: 048
  6. CALCIUM\CHOLECALCIFEROL [Concomitant]
     Active Substance: CALCIUM\CHOLECALCIFEROL
     Dosage: 500 / 800 0-1-0-0, DAILY
     Route: 048
  7. PANTOPRAZOLE SODIUM [Concomitant]
     Active Substance: PANTOPRAZOLE SODIUM
     Dosage: 20 MG, DAILY, 1-0-0-0
     Route: 048
  8. PROGRAF [Concomitant]
     Active Substance: TACROLIMUS
     Dosage: 0.5 MG, DAILY, 0-0-1-0
     Route: 048
  9. PROGRAF [Concomitant]
     Active Substance: TACROLIMUS
     Dosage: 1 MG, DAILY, 1-0-0-0
     Route: 048
  10. PREDNISOLONE [Concomitant]
     Active Substance: PREDNISOLONE
     Dosage: 5 MG, DAILY, 1-0-0-0
     Route: 048
  11. VEMLIDY [Concomitant]
     Active Substance: TENOFOVIR ALAFENAMIDE FUMARATE
     Dosage: 25 MG, DAILY, 1-0-0-0
     Route: 048
  12. CARVEDILOL [Concomitant]
     Active Substance: CARVEDILOL
     Dosage: 6.25 MG, DAILY, 1-0-0-0
     Route: 048
  13. CANDESARTAN [Concomitant]
     Active Substance: CANDESARTAN
     Dosage: 16 MG, DAILY, 1-0-0-0
     Route: 048

REACTIONS (2)
  - Agranulocytosis [Recovering/Resolving]
  - Pancytopenia [Recovering/Resolving]

NARRATIVE: CASE EVENT DATE: 20210909
